FAERS Safety Report 7156465-8 (Version None)
Quarter: 2010Q4

REPORT INFORMATION
  Report Type: 
  Country: None (occurrence: None)
  Receive Date: 20101214
  Receipt Date: 20100114
  Transmission Date: 20110411
  Serious: No
  Sender: FDA-Public Use
  Company Number: US-ASTRAZENECA-2009SE27615

PATIENT
  Sex: Female

DRUGS (2)
  1. CRESTOR [Suspect]
     Route: 048
     Dates: start: 20090801, end: 20090901
  2. CRESTOR [Suspect]
     Route: 048

REACTIONS (4)
  - ABASIA [None]
  - COUGH [None]
  - DRUG HYPERSENSITIVITY [None]
  - MYALGIA [None]
